FAERS Safety Report 5672336-8 (Version None)
Quarter: 2008Q1

REPORT INFORMATION
  Report Type: 
  Country: None (occurrence: None)
  Receive Date: 20080317
  Receipt Date: 20080304
  Transmission Date: 20080703
  Serious: Yes (Death)
  Sender: FDA-Public Use
  Company Number: 1-15856212

PATIENT
  Sex: Female

DRUGS (1)
  1. FENTANYL [Suspect]
     Dosage: 25 MCG/HR EVERY 72 HRS, TRANSDERMAL
     Route: 062
     Dates: start: 20080115, end: 20080302

REACTIONS (1)
  - PNEUMONIA [None]
